FAERS Safety Report 5684683-4 (Version None)
Quarter: 2008Q1

REPORT INFORMATION
  Report Type: 
  Country: None (occurrence: None)
  Receive Date: 20080328
  Receipt Date: 20070613
  Transmission Date: 20080703
  Serious: No
  Sender: FDA-Public Use
  Company Number: US-BRISTOL-MYERS SQUIBB COMPANY-13814082

PATIENT
  Age: 68 Year
  Sex: Male

DRUGS (8)
  1. ERBITUX [Suspect]
     Indication: NEOPLASM MALIGNANT
  2. RADIATION THERAPY [Suspect]
     Indication: NEOPLASM MALIGNANT
     Dates: start: 20060307, end: 20060606
  3. VICODIN [Concomitant]
     Dates: start: 20060305
  4. PERCOCET [Concomitant]
  5. MOUTHWASH [Concomitant]
     Dates: start: 20060324
  6. OXYCONTIN [Concomitant]
     Dates: start: 20060330
  7. DIFLUCAN [Concomitant]
     Dates: start: 20060523
  8. XYLOCAINE VISCOUS [Concomitant]
     Dates: start: 20060328

REACTIONS (2)
  - RASH [None]
  - STOMATITIS [None]
